FAERS Safety Report 8071296-2 (Version None)
Quarter: 2012Q1

REPORT INFORMATION
  Report Type: 
  Country: None (occurrence: None)
  Receive Date: 20120125
  Receipt Date: 20120118
  Transmission Date: 20120608
  Serious: Yes (Hospitalization)
  Sender: FDA-Public Use
  Company Number: US-US-EMD SERONO, INC.-7012013

PATIENT
  Sex: Female

DRUGS (3)
  1. REBIF [Suspect]
     Indication: MULTIPLE SCLEROSIS
     Route: 058
     Dates: start: 20020701
  2. KEPPRA [Concomitant]
     Indication: CONVULSION
  3. COUMADIN [Concomitant]
     Indication: DEEP VEIN THROMBOSIS

REACTIONS (10)
  - SPINAL COLUMN INJURY [None]
  - PNEUMONIA [None]
  - POST PROCEDURAL COMPLICATION [None]
  - CONVULSION [None]
  - ARTHRALGIA [None]
  - MUSCULAR WEAKNESS [None]
  - FALL [None]
  - BLOOD SODIUM DECREASED [None]
  - THROMBOSIS [None]
  - UPPER LIMB FRACTURE [None]
